FAERS Safety Report 23929010 (Version 1)
Quarter: 2024Q2

REPORT INFORMATION
  Report Type: Spontaneous
  Country: US (occurrence: US)
  Receive Date: 20240601
  Receipt Date: 20240601
  Transmission Date: 20240716
  Serious: Yes (Hospitalization)
  Sender: FDA-Public Use
  Company Number: US-RADIUS HEALTH, INC.-2023US004757

PATIENT
  Age: 77 Year
  Sex: Female

DRUGS (3)
  1. TYMLOS [Suspect]
     Active Substance: ABALOPARATIDE
     Indication: Osteoporosis
     Dosage: 80 MICROGRAM, QD
     Route: 058
     Dates: start: 20230818, end: 20230909
  2. TYMLOS [Suspect]
     Active Substance: ABALOPARATIDE
     Indication: Senile osteoporosis
     Dosage: 80 MICROGRAM, QD
     Route: 058
     Dates: start: 20231030, end: 20231109
  3. TYMLOS [Suspect]
     Active Substance: ABALOPARATIDE
     Dosage: 80MCG QOD
     Route: 058

REACTIONS (9)
  - Hypercalcaemia [Recovering/Resolving]
  - Decreased appetite [Unknown]
  - Weight decreased [Unknown]
  - Bone pain [Not Recovered/Not Resolved]
  - Arthralgia [Not Recovered/Not Resolved]
  - Headache [Not Recovered/Not Resolved]
  - Malaise [Recovered/Resolved]
  - Heart rate increased [Not Recovered/Not Resolved]
  - Intentional product misuse [Unknown]

NARRATIVE: CASE EVENT DATE: 20230910
